FAERS Safety Report 15558018 (Version 2)
Quarter: 2018Q4

REPORT INFORMATION
  Report Type: Spontaneous
  Country: US (occurrence: US)
  Receive Date: 20181027
  Receipt Date: 20181029
  Transmission Date: 20190205
  Serious: No
  Sender: FDA-Public Use
  Company Number: US-009507513-1810USA006640

PATIENT
  Sex: Female

DRUGS (1)
  1. BELSOMRA [Suspect]
     Active Substance: SUVOREXANT
     Route: 048

REACTIONS (2)
  - Drug ineffective [Unknown]
  - Insomnia [Unknown]
